FAERS Safety Report 13296528 (Version 2)
Quarter: 2017Q2

REPORT INFORMATION
  Report Type: Other
  Country: US (occurrence: US)
  Receive Date: 20170305
  Receipt Date: 20170530
  Transmission Date: 20170830
  Serious: No
  Sender: FDA-Public Use
  Company Number: US-SHIRE-US201703708

PATIENT
  Age: 68 Year
  Sex: Female

DRUGS (1)
  1. XIIDRA [Suspect]
     Active Substance: LIFITEGRAST
     Indication: DRY EYE
     Dosage: 1 GTT, 2X/DAY:BID
     Route: 047
     Dates: start: 20170213, end: 20170222

REACTIONS (4)
  - Inappropriate schedule of drug administration [Unknown]
  - Drug ineffective [Unknown]
  - Paranoia [Unknown]
  - Dry eye [Unknown]

NARRATIVE: CASE EVENT DATE: 20170217
